FAERS Safety Report 12804143 (Version 1)
Quarter: 2016Q4

REPORT INFORMATION
  Report Type: Spontaneous
  Country: US (occurrence: US)
  Receive Date: 20161003
  Receipt Date: 20161003
  Transmission Date: 20170207
  Serious: Yes (Other)
  Sender: FDA-Public Use
  Company Number: US-SAOL THERAPEUTICS-2016SAO00278

PATIENT
  Age: 69 Year
  Sex: Male
  Weight: 108.84 kg

DRUGS (9)
  1. BACLOFEN. [Suspect]
     Active Substance: BACLOFEN
     Indication: HEMIPLEGIA
     Dosage: UNK
  2. BACLOFEN. [Concomitant]
     Active Substance: BACLOFEN
     Dosage: 1-2 TABLETS 3X DAY
  3. LIDODERM [Concomitant]
     Active Substance: LIDOCAINE
     Dosage: 2 PATCHES 1X DAY, 12 HOURS ON, 12 HOURS OFF
  4. NORVASC [Concomitant]
     Active Substance: AMLODIPINE BESYLATE
     Dosage: 10 MG 1 TABLET 1X DAY
  5. GABAPENTIN. [Concomitant]
     Active Substance: GABAPENTIN
     Dosage: 1 CAPSULE 1X DAY AT BEDTIME
  6. ATENOLOL. [Concomitant]
     Active Substance: ATENOLOL
     Dosage: 1X DAY
  7. BACLOFEN. [Suspect]
     Active Substance: BACLOFEN
     Indication: MUSCLE SPASTICITY
     Dosage: 286 ?G, \DAY
     Route: 037
  8. MORPHINE [Suspect]
     Active Substance: MORPHINE
     Dosage: 8.5 MG, \DAY
     Route: 037
  9. POTASSIUM CHLORIDE. [Concomitant]
     Active Substance: POTASSIUM CHLORIDE
     Dosage: 1X DAY

REACTIONS (16)
  - Electrolyte imbalance [Unknown]
  - Arthralgia [Unknown]
  - Leukocytosis [Unknown]
  - Syncope [Unknown]
  - Hypertension [Unknown]
  - Decubitus ulcer [Unknown]
  - Sepsis [Recovered/Resolved]
  - Malaise [Recovered/Resolved]
  - Candida infection [Recovered/Resolved]
  - Electrocardiogram QT prolonged [Unknown]
  - Pneumonia aspiration [Recovered/Resolved]
  - Blood potassium decreased [Unknown]
  - Urinary tract infection [Recovered/Resolved]
  - Device malfunction [Unknown]
  - Blood calcium decreased [Unknown]
  - Blood glucose increased [Unknown]

NARRATIVE: CASE EVENT DATE: 201607
